FAERS Safety Report 19106443 (Version 1)
Quarter: 2021Q2

REPORT INFORMATION
  Report Type: Spontaneous
  Country: GB (occurrence: GB)
  Receive Date: 20210407
  Receipt Date: 20210407
  Transmission Date: 20210717
  Serious: Yes (Other)
  Sender: FDA-Public Use
  Company Number: GB-INCYTE CORPORATION-2021IN001733

PATIENT

DRUGS (4)
  1. HYDROXYUREA. [Suspect]
     Active Substance: HYDROXYUREA
     Indication: MYELOFIBROSIS
     Dosage: 500 MG, QD
     Route: 065
     Dates: start: 201804
  2. HYDROXYUREA. [Suspect]
     Active Substance: HYDROXYUREA
     Dosage: 1 G (AT WEEKEND SAT?SUN)
     Route: 065
  3. JAKAVI [Suspect]
     Active Substance: RUXOLITINIB
     Dosage: 15 MG, BID
     Route: 065
  4. JAKAVI [Suspect]
     Active Substance: RUXOLITINIB
     Indication: MYELOFIBROSIS
     Dosage: 10 MG, BID
     Route: 065
     Dates: start: 2012, end: 2017

REACTIONS (13)
  - Mouth ulceration [Unknown]
  - Malignant neoplasm progression [Unknown]
  - Anaemia [Unknown]
  - Thrombocytopenia [Unknown]
  - Intentional product use issue [Unknown]
  - Headache [Unknown]
  - Hyperhidrosis [Unknown]
  - Spleen disorder [Unknown]
  - Drug intolerance [Unknown]
  - Myelofibrosis [Unknown]
  - Basophil count increased [Unknown]
  - Haematotoxicity [Unknown]
  - Mood altered [Unknown]
